FAERS Safety Report 8122398-3 (Version None)
Quarter: 2012Q1

REPORT INFORMATION
  Report Type: 
  Country: None (occurrence: None)
  Receive Date: 20120208
  Receipt Date: 20120202
  Transmission Date: 20120608
  Serious: Yes (Hospitalization)
  Sender: FDA-Public Use
  Company Number: US-GLAXOSMITHKLINE-A0964667A

PATIENT
  Age: 70 Year
  Sex: Female

DRUGS (1)
  1. PROMACTA [Suspect]
     Indication: AUTOIMMUNE THROMBOCYTOPENIA
     Dosage: 75MG PER DAY
     Route: 048
     Dates: start: 20100430

REACTIONS (3)
  - LUNG DISORDER [None]
  - PULMONARY THROMBOSIS [None]
  - DYSPNOEA [None]
